FAERS Safety Report 16942711 (Version 2)
Quarter: 2019Q4

REPORT INFORMATION
  Report Type: Spontaneous
  Country: RU (occurrence: RU)
  Receive Date: 20191021
  Receipt Date: 20191114
  Transmission Date: 20200122
  Serious: Yes (Hospitalization)
  Sender: FDA-Public Use
  Company Number: RU-ABBVIE-19K-251-2970571-00

PATIENT
  Age: 59 Year
  Sex: Male

DRUGS (1)
  1. HUMIRA [Suspect]
     Active Substance: ADALIMUMAB
     Indication: PSORIASIS
     Route: 058
     Dates: start: 201904, end: 201910

REACTIONS (5)
  - Anogenital warts [Recovering/Resolving]
  - Latent syphilis [Recovering/Resolving]
  - Hepatitis E [Recovering/Resolving]
  - Papilloma viral infection [Recovering/Resolving]
  - Transaminases increased [Not Recovered/Not Resolved]

NARRATIVE: CASE EVENT DATE: 201910
